FAERS Safety Report 15458853 (Version 3)
Quarter: 2019Q2

REPORT INFORMATION
  Report Type: Spontaneous
  Country: US (occurrence: US)
  Receive Date: 20181003
  Receipt Date: 20190402
  Transmission Date: 20190711
  Serious: No
  Sender: FDA-Public Use
  Company Number: US-SA-2018SA269552

PATIENT
  Age: 74 Year
  Sex: Female

DRUGS (5)
  1. CALCIUM 600 + D [Concomitant]
     Active Substance: CALCIUM\VITAMIN D
  2. AUBAGIO [Suspect]
     Active Substance: TERIFLUNOMIDE
     Indication: MULTIPLE SCLEROSIS
     Dosage: 14 MG, QD
     Route: 048
     Dates: start: 20180415
  3. AMANTADINE HCL [Concomitant]
     Active Substance: AMANTADINE HYDROCHLORIDE
  4. AMBIEN [Concomitant]
     Active Substance: ZOLPIDEM TARTRATE
  5. FISH OIL [Concomitant]
     Active Substance: FISH OIL

REACTIONS (4)
  - Balance disorder [Unknown]
  - Fatigue [Recovering/Resolving]
  - Alopecia [Recovered/Resolved]
  - Headache [Unknown]
